FAERS Safety Report 24297829 (Version 1)
Quarter: 2024Q3

REPORT INFORMATION
  Report Type: Spontaneous
  Country: CN (occurrence: CN)
  Receive Date: 20240909
  Receipt Date: 20240909
  Transmission Date: 20241016
  Serious: Yes (Life-Threatening, Hospitalization, Other)
  Sender: BAYER
  Company Number: CN-BAYER-2024A126463

PATIENT
  Age: 33 Year
  Sex: Female

DRUGS (1)
  1. YASMIN [Suspect]
     Active Substance: DROSPIRENONE\ETHINYL ESTRADIOL
     Indication: Contraception
     Dosage: 1 DF, QD
     Route: 048
     Dates: start: 20240725, end: 20240803

REACTIONS (12)
  - Cerebral infarction [Recovering/Resolving]
  - Cerebral artery occlusion [None]
  - Cerebral artery stenosis [None]
  - Muscular weakness [None]
  - Dysarthria [None]
  - Cerebral thrombosis [Recovering/Resolving]
  - Tricuspid valve incompetence [None]
  - Hypokalaemia [None]
  - Headache [Recovering/Resolving]
  - Hypoaesthesia [Recovering/Resolving]
  - Respiratory rate increased [None]
  - Arteriosclerosis [None]

NARRATIVE: CASE EVENT DATE: 20240801
